FAERS Safety Report 13938051 (Version 2)
Quarter: 2017Q3

REPORT INFORMATION
  Report Type: Spontaneous
  Country: BR (occurrence: BR)
  Receive Date: 20170905
  Receipt Date: 20170918
  Transmission Date: 20171127
  Serious: Yes (Life-Threatening, Hospitalization)
  Sender: FDA-Public Use
  Company Number: BR-SA-2017SA164391

PATIENT
  Age: 64 Year
  Sex: Female
  Weight: 78 kg

DRUGS (10)
  1. GENUXAL [Suspect]
     Active Substance: CYCLOPHOSPHAMIDE
     Indication: BREAST CANCER
     Route: 042
     Dates: start: 20170817, end: 20170817
  2. TAXOTERE [Suspect]
     Active Substance: DOCETAXEL
     Indication: BREAST CANCER
     Route: 042
     Dates: start: 20170727, end: 20170727
  3. TAXOTERE [Suspect]
     Active Substance: DOCETAXEL
     Indication: BREAST CANCER
     Route: 042
     Dates: start: 20170817, end: 20170817
  4. DECADRON [Concomitant]
     Active Substance: DEXAMETHASONE
     Indication: CHEMOTHERAPY
     Route: 042
     Dates: start: 20170817, end: 20170817
  5. NAUSEDRON [Concomitant]
     Active Substance: ONDANSETRON HYDROCHLORIDE
     Indication: CHEMOTHERAPY
     Route: 042
     Dates: start: 20170727, end: 20170727
  6. TAXOTERE [Suspect]
     Active Substance: DOCETAXEL
     Indication: BREAST CANCER
     Route: 042
     Dates: start: 20170817, end: 20170817
  7. TAXOTERE [Suspect]
     Active Substance: DOCETAXEL
     Indication: BREAST CANCER
     Route: 042
     Dates: start: 20170727, end: 20170727
  8. GENUXAL [Suspect]
     Active Substance: CYCLOPHOSPHAMIDE
     Indication: BREAST CANCER
     Route: 042
     Dates: start: 20170727, end: 20170727
  9. DECADRON [Concomitant]
     Active Substance: DEXAMETHASONE
     Indication: CHEMOTHERAPY
     Route: 042
     Dates: start: 20170727, end: 20170727
  10. NAUSEDRON [Concomitant]
     Active Substance: ONDANSETRON HYDROCHLORIDE
     Indication: CHEMOTHERAPY
     Route: 042
     Dates: start: 20170817, end: 20170817

REACTIONS (17)
  - Nausea [Recovered/Resolved]
  - Tremor [Recovered/Resolved]
  - Apathy [Recovered/Resolved]
  - Dysphonia [Recovered/Resolved]
  - Capillary fragility [Recovered/Resolved]
  - Headache [Recovered/Resolved]
  - Surgery [Unknown]
  - Fatigue [Recovered/Resolved]
  - Adverse event [Recovered/Resolved]
  - Hypotension [Recovered/Resolved]
  - Tremor [Recovered/Resolved]
  - Sticky skin [Recovered/Resolved]
  - Mydriasis [Recovered/Resolved]
  - Loss of consciousness [Recovered/Resolved]
  - Peripheral coldness [Recovered/Resolved]
  - Vascular fragility [Recovered/Resolved]
  - Salivary hypersecretion [Recovered/Resolved]

NARRATIVE: CASE EVENT DATE: 20170817
